FAERS Safety Report 17462490 (Version 2)
Quarter: 2020Q1

REPORT INFORMATION
  Report Type: Spontaneous
  Country: US (occurrence: US)
  Receive Date: 20200226
  Receipt Date: 20200320
  Transmission Date: 20200409
  Serious: No
  Sender: FDA-Public Use
  Company Number: US-ASTRAZENECA-2020SE26535

PATIENT
  Age: 63 Year
  Sex: Male

DRUGS (1)
  1. BYDUREON BCISE [Suspect]
     Active Substance: EXENATIDE
     Indication: DIABETES MELLITUS
     Route: 065

REACTIONS (8)
  - Memory impairment [Unknown]
  - Wrong technique in device usage process [Unknown]
  - Device issue [Unknown]
  - Headache [Recovered/Resolved]
  - Pain [Unknown]
  - Glycosylated haemoglobin abnormal [Unknown]
  - Poor quality sleep [Unknown]
  - Abdominal discomfort [Recovered/Resolved]

NARRATIVE: CASE EVENT DATE: 201904
